FAERS Safety Report 7763591-9 (Version None)
Quarter: 2011Q3

REPORT INFORMATION
  Report Type: 
  Country: None (occurrence: None)
  Receive Date: 20110920
  Receipt Date: 20110831
  Transmission Date: 20111222
  Serious: Yes (Other)
  Sender: FDA-Public Use
  Company Number: US-BAYER-2011-081309

PATIENT
  Age: 73 Year
  Sex: Female

DRUGS (4)
  1. AVELOX [Suspect]
     Indication: PNEUMONIA
     Dosage: UNK
     Route: 042
     Dates: start: 20110801
  2. AVELOX [Suspect]
     Dosage: UNK
     Route: 048
     Dates: start: 20110817
  3. POTASSIUM [Concomitant]
  4. MUCINEX [Concomitant]

REACTIONS (7)
  - DYSPNOEA [None]
  - PALPITATIONS [None]
  - INSOMNIA [None]
  - MUSCULOSKELETAL PAIN [None]
  - UPPER EXTREMITY MASS [None]
  - ASTHENIA [None]
  - PARAESTHESIA [None]
